FAERS Safety Report 22239446 (Version 1)
Quarter: 2023Q2

REPORT INFORMATION
  Report Type: Spontaneous
  Country: ES (occurrence: ES)
  Receive Date: 20230421
  Receipt Date: 20230421
  Transmission Date: 20230722
  Serious: Yes (Other)
  Sender: FDA-Public Use
  Company Number: None

PATIENT
  Sex: Female

DRUGS (1)
  1. VALIUM [Suspect]
     Active Substance: DIAZEPAM
     Indication: Product used for unknown indication
     Dates: start: 20230405

REACTIONS (3)
  - Areflexia [Unknown]
  - Miosis [Unknown]
  - Hyporeflexia [Unknown]

NARRATIVE: CASE EVENT DATE: 20230405
